FAERS Safety Report 5268617-2 (Version None)
Quarter: 2007Q1

REPORT INFORMATION
  Report Type: 
  Country: None (occurrence: None)
  Receive Date: 20070313
  Receipt Date: 20070207
  Transmission Date: 20070707
  Serious: Yes (Other)
  Sender: FDA-Public Use
  Company Number: 2007VX000484

PATIENT
  Age: 65 Year
  Sex: Male

DRUGS (1)
  1. LIBRAX [Suspect]
     Indication: DIVERTICULUM
     Dates: start: 20070115, end: 20070204

REACTIONS (4)
  - ANGINA PECTORIS [None]
  - CONDITION AGGRAVATED [None]
  - ELECTROCARDIOGRAM ABNORMAL [None]
  - NASOPHARYNGITIS [None]
